FAERS Safety Report 14066188 (Version 2)
Quarter: 2017Q4

REPORT INFORMATION
  Report Type: Spontaneous
  Country: US (occurrence: US)
  Receive Date: 20171009
  Receipt Date: 20171127
  Transmission Date: 20180321
  Serious: Yes (Hospitalization, Other)
  Sender: FDA-Public Use
  Company Number: US-NOVOPROD-566224

PATIENT
  Age: 64 Year
  Sex: Female
  Weight: 52.61 kg

DRUGS (4)
  1. NOVOLOG [Suspect]
     Active Substance: INSULIN ASPART
     Indication: TYPE 1 DIABETES MELLITUS
     Dosage: SLIDING SCALE
     Route: 058
     Dates: start: 201704
  2. LEVEMIR [Suspect]
     Active Substance: INSULIN DETEMIR
     Dosage: 19 U, QD AT NIGHT
     Route: 058
     Dates: start: 2017, end: 201708
  3. LEVEMIR [Suspect]
     Active Substance: INSULIN DETEMIR
     Indication: TYPE 1 DIABETES MELLITUS
     Dosage: 10 U, QD AT NIGHT
     Route: 058
     Dates: start: 201704, end: 2017
  4. LEVEMIR [Suspect]
     Active Substance: INSULIN DETEMIR
     Dosage: 18 U, QD AT NIGHT
     Route: 058
     Dates: start: 2017, end: 2017

REACTIONS (6)
  - Decreased appetite [Recovering/Resolving]
  - Memory impairment [Unknown]
  - Supranuclear palsy [Not Recovered/Not Resolved]
  - Blood glucose increased [Not Recovered/Not Resolved]
  - Weight decreased [Recovering/Resolving]
  - Treatment noncompliance [Unknown]

NARRATIVE: CASE EVENT DATE: 2017
